FAERS Safety Report 8059024-8 (Version None)
Quarter: 2012Q1

REPORT INFORMATION
  Report Type: 
  Country: None (occurrence: None)
  Receive Date: 20120120
  Receipt Date: 20110413
  Transmission Date: 20120608
  Serious: No
  Sender: FDA-Public Use
  Company Number: US-BAUSCH-2011BL002563

PATIENT
  Age: 71 Year
  Sex: Female

DRUGS (2)
  1. ALAWAY [Suspect]
     Indication: EYE IRRITATION
     Route: 047
     Dates: start: 20110402
  2. RESTASIS [Suspect]
     Indication: DRY EYE
     Route: 047
     Dates: start: 20110321, end: 20110402

REACTIONS (5)
  - LACRIMATION INCREASED [None]
  - ERYTHEMA OF EYELID [None]
  - EYE IRRITATION [None]
  - EYELID IRRITATION [None]
  - CONDITION AGGRAVATED [None]
